APPROVED DRUG PRODUCT: OFLOXACIN
Active Ingredient: OFLOXACIN
Strength: 400MG
Dosage Form/Route: TABLET;ORAL
Application: A076182 | Product #003 | TE Code: AB
Applicant: TEVA PHARMACEUTICALS USA INC
Approved: Sep 2, 2003 | RLD: No | RS: Yes | Type: RX